FAERS Safety Report 7105511-6 (Version None)
Quarter: 2010Q4

REPORT INFORMATION
  Report Type: 
  Country: None (occurrence: None)
  Receive Date: 20101116
  Receipt Date: 20101108
  Transmission Date: 20110411
  Serious: Yes (Hospitalization)
  Sender: FDA-Public Use
  Company Number: ES-ROCHE-724332

PATIENT
  Age: 83 Year
  Sex: Female

DRUGS (8)
  1. ROACTEMRA [Suspect]
     Indication: RHEUMATOID ARTHRITIS
     Dosage: DOSE: 600 (UNITS NOT PROVIDED)
     Route: 042
     Dates: start: 20100617, end: 20100617
  2. METOJECT [Concomitant]
     Indication: RHEUMATOID ARTHRITIS
     Route: 058
     Dates: start: 19980101, end: 19990101
  3. METOJECT [Concomitant]
     Route: 058
     Dates: start: 20081216, end: 20100810
  4. ARCOXIA [Concomitant]
     Indication: RHEUMATOID ARTHRITIS
     Route: 048
     Dates: start: 20081216
  5. ZAMENE [Concomitant]
     Indication: RHEUMATOID ARTHRITIS
     Route: 048
     Dates: start: 19980101, end: 19990101
  6. ZAMENE [Concomitant]
     Route: 048
     Dates: start: 20081216
  7. BONIVA [Concomitant]
     Indication: OSTEOPOROSIS
     Route: 048
     Dates: start: 20070822
  8. NEUPOGEN [Concomitant]
     Dosage: ONE INJECTION DAILY

REACTIONS (2)
  - PANCYTOPENIA [None]
  - STOMATITIS [None]
